FAERS Safety Report 4810121-7 (Version None)
Quarter: 2005Q4

REPORT INFORMATION
  Report Type: 
  Country: None (occurrence: None)
  Receive Date: 20051024
  Receipt Date: 20051014
  Transmission Date: 20060501
  Serious: Yes (Hospitalization)
  Sender: FDA-Public Use
  Company Number: 2005RR-00946

PATIENT
  Age: 83 Year
  Sex: Female

DRUGS (4)
  1. FLUOXETINE [Suspect]
     Indication: DEPRESSION
     Dosage: 20 MG, QD, ORAL
     Route: 048
     Dates: start: 20050911, end: 20050919
  2. MADOPAR [Concomitant]
  3. ASPIRIN [Concomitant]
  4. BETAHISTINE (BETAHISTINE) [Concomitant]

REACTIONS (1)
  - BLOOD SODIUM DECREASED [None]
